FAERS Safety Report 5956950-8 (Version None)
Quarter: 2008Q4

REPORT INFORMATION
  Report Type: 
  Country: None (occurrence: None)
  Receive Date: 20081118
  Receipt Date: 20081114
  Transmission Date: 20090506
  Serious: Yes (Death, Congenital Anomaly)
  Sender: FDA-Public Use
  Company Number: FR-ASTRAZENECA-2008CG01569

PATIENT
  Sex: Male

DRUGS (4)
  1. ZOMIGORO [Suspect]
     Route: 064
  2. POLARAMINE [Suspect]
     Route: 064
  3. QVAR 40 [Suspect]
     Route: 064
  4. CROMABAK [Suspect]
     Route: 064

REACTIONS (2)
  - ABORTION INDUCED [None]
  - CONGENITAL HYDROCEPHALUS [None]
